FAERS Safety Report 9153491 (Version 1)
Quarter: 2013Q1

REPORT INFORMATION
  Report Type: Spontaneous
  Country: US (occurrence: US)
  Receive Date: 20130311
  Receipt Date: 20130311
  Transmission Date: 20140127
  Serious: Yes (Other)
  Sender: FDA-Public Use
  Company Number: US-BAYER-2013-027586

PATIENT
  Age: 37 Year
  Sex: Female
  Weight: 74.83 kg

DRUGS (8)
  1. YAZ [Suspect]
     Indication: CONTRACEPTION
     Dosage: UNK
     Dates: start: 20070210, end: 20100526
  2. YAZ [Suspect]
     Indication: PREMENSTRUAL DYSPHORIC DISORDER
  3. GIANVI [Suspect]
     Indication: CONTRACEPTION
     Dosage: UNK
     Dates: start: 20100628, end: 20110928
  4. GIANVI [Suspect]
     Indication: PREMENSTRUAL DYSPHORIC DISORDER
  5. SYNTHROID [Concomitant]
     Dosage: UNK
     Dates: start: 2003
  6. ALLEGRA [Concomitant]
     Dosage: UNK
     Dates: start: 2004
  7. TRIAMCINOLONE [Concomitant]
     Dosage: UNK
     Route: 045
     Dates: start: 20110731
  8. VARIOUS ASTHMA MEDICATIONS [Concomitant]
     Dosage: UNK
     Dates: start: 2003

REACTIONS (3)
  - Deep vein thrombosis [Not Recovered/Not Resolved]
  - Pain in extremity [Not Recovered/Not Resolved]
  - Oedema peripheral [Not Recovered/Not Resolved]
